FAERS Safety Report 8947983 (Version 1)
Quarter: 2012Q4

REPORT INFORMATION
  Report Type: Report from Study
  Country: CN (occurrence: CN)
  Receive Date: 20121204
  Receipt Date: 20121204
  Transmission Date: 20130627
  Serious: Yes (Death)
  Sender: FDA-Public Use
  Company Number: CN-GILEAD-2012-0065352

PATIENT
  Age: 61 Year
  Sex: Female

DRUGS (2)
  1. ADEFOVIR DIPIVOXIL [Suspect]
     Indication: HEPATITIS B
     Dosage: 10 mg, QD
     Route: 048
     Dates: start: 20090929
  2. LAMIVUDINE [Suspect]
     Indication: HEPATITIS B
     Dosage: 100MG Per day
     Route: 048
     Dates: start: 20081031

REACTIONS (1)
  - Hepatocellular carcinoma [Fatal]
